FAERS Safety Report 15297684 (Version 1)
Quarter: 2018Q3

REPORT INFORMATION
  Report Type: Spontaneous
  Country: DK (occurrence: DK)
  Receive Date: 20180820
  Receipt Date: 20180820
  Transmission Date: 20181010
  Serious: Yes (Hospitalization)
  Sender: FDA-Public Use
  Company Number: DK-BRISTOL-MYERS SQUIBB COMPANY-BMS-2018-076410

PATIENT
  Age: 51 Year
  Sex: Male
  Weight: 161 kg

DRUGS (7)
  1. DOMPERIDONE [Concomitant]
     Active Substance: DOMPERIDONE
     Indication: NAUSEA
     Dosage: UNK
     Route: 065
     Dates: start: 20171019
  2. ZOPIDEM [Concomitant]
     Active Substance: ZOLPIDEM\ZOLPIDEM TARTRATE
     Indication: INSOMNIA
     Dosage: UNK
     Route: 065
     Dates: start: 20180219
  3. SUNITINIB MALATE. [Suspect]
     Active Substance: SUNITINIB MALATE
     Indication: RENAL CELL CARCINOMA
     Dosage: 50 MG, QD (4 WEEKS ON, 2 WEEKS OFF)
     Route: 048
  4. OXABENZ [Concomitant]
     Active Substance: OXAZEPAM
     Indication: SEDATIVE THERAPY
     Dosage: UNK
     Route: 065
     Dates: start: 20171212
  5. ALMINOX                            /00037901/ [Concomitant]
     Indication: DYSPEPSIA
     Dosage: UNK
     Route: 065
     Dates: start: 20171019
  6. NIVOLUMAB [Suspect]
     Active Substance: NIVOLUMAB
     Indication: RENAL CELL CARCINOMA
     Dosage: 3 MG/KG, UNK
     Route: 042
     Dates: start: 20180712
  7. AMLODIPIN                          /00972401/ [Concomitant]
     Active Substance: AMLODIPINE BESYLATE
     Indication: PRODUCT USED FOR UNKNOWN INDICATION
     Dosage: UNK
     Route: 065
     Dates: start: 20150203

REACTIONS (2)
  - Infection [Unknown]
  - Anaemia [Unknown]

NARRATIVE: CASE EVENT DATE: 20180724
